FAERS Safety Report 5276550-5 (Version None)
Quarter: 2007Q1

REPORT INFORMATION
  Report Type: 
  Country: None (occurrence: None)
  Receive Date: 20061213
  Receipt Date: 20040325
  Transmission Date: 20070707
  Serious: No
  Sender: FDA-Public Use
  Company Number: 2004UW01700

PATIENT
  Age: 42 Year
  Sex: Male
  Weight: 90.7194 kg

DRUGS (2)
  1. SEROQUEL [Suspect]
     Dosage: 25 MG HS PO
     Route: 048
     Dates: start: 20030916, end: 20031014
  2. EFFEXOR XR [Concomitant]

REACTIONS (1)
  - TARDIVE DYSKINESIA [None]
